FAERS Safety Report 20875159 (Version 1)
Quarter: 2022Q2

REPORT INFORMATION
  Report Type: Spontaneous
  Country: AU (occurrence: AU)
  Receive Date: 20220526
  Receipt Date: 20220526
  Transmission Date: 20220720
  Serious: Yes (Other)
  Sender: FDA-Public Use
  Company Number: AU-ALKEM LABORATORIES LIMITED-AU-ALKEM-2022-04791

PATIENT
  Sex: Male

DRUGS (1)
  1. TACROLIMUS [Suspect]
     Active Substance: TACROLIMUS
     Indication: Product used for unknown indication
     Dosage: UNK
     Route: 065

REACTIONS (8)
  - Acute graft versus host disease [Unknown]
  - Acute graft versus host disease in intestine [Unknown]
  - Acute graft versus host disease in liver [Unknown]
  - Dermatitis exfoliative generalised [Unknown]
  - Graft versus host disease in skin [Unknown]
  - Drug resistance [Unknown]
  - Disease progression [Unknown]
  - Rash [Unknown]
